FAERS Safety Report 6741093-6 (Version None)
Quarter: 2010Q2

REPORT INFORMATION
  Report Type: 
  Country: None (occurrence: None)
  Receive Date: 20100525
  Receipt Date: 20100525
  Transmission Date: 20101027
  Serious: Yes (Other)
  Sender: FDA-Public Use
  Company Number: None

PATIENT
  Age: 50 Year
  Sex: Female
  Weight: 87.0906 kg

DRUGS (1)
  1. AMOXICILLIN AND CLAVULANATE POTASSIUM [Suspect]
     Indication: EAR INFECTION
     Dosage: 1 12 HOURS PO
     Route: 048
     Dates: start: 20100419, end: 20100421

REACTIONS (7)
  - ABDOMINAL PAIN [None]
  - RASH [None]
  - RECTOCELE [None]
  - URINARY TRACT INFECTION [None]
  - VAGINAL DISORDER [None]
  - VAGINAL INFECTION [None]
  - VAGINAL MUCOSAL BLISTERING [None]
